FAERS Safety Report 4896040-9 (Version None)
Quarter: 2005Q4

REPORT INFORMATION
  Report Type: 
  Country: None (occurrence: None)
  Receive Date: 20051220
  Receipt Date: 20050811
  Transmission Date: 20060501
  Serious: Yes (Hospitalization)
  Sender: FDA-Public Use
  Company Number: US033186

PATIENT
  Age: 57 Year
  Sex: Female

DRUGS (9)
  1. ENBREL [Suspect]
     Indication: RHEUMATOID ARTHRITIS
     Dosage: 25 MG, 2 IN 1 WEEKS
     Dates: end: 20030302
  2. PREDNISOLONE [Concomitant]
  3. RAMIPRIL [Concomitant]
  4. ATENOLOL [Concomitant]
  5. FUROSEMIDE [Concomitant]
  6. NABUMETONE [Concomitant]
  7. LANSOPRAZOLE [Concomitant]
  8. ASPIRIN [Concomitant]
  9. ALENDRONATE SODIUM [Concomitant]

REACTIONS (4)
  - DYSPNOEA [None]
  - LYMPHOPENIA [None]
  - PNEUMONIA [None]
  - TUBERCULOSIS [None]
